FAERS Safety Report 7458439-6 (Version None)
Quarter: 2011Q2

REPORT INFORMATION
  Report Type: 
  Country: None (occurrence: None)
  Receive Date: 20110504
  Receipt Date: 20110426
  Transmission Date: 20111010
  Serious: Yes (Other)
  Sender: FDA-Public Use
  Company Number: B0703920A

PATIENT
  Age: 13 Year

DRUGS (3)
  1. RETROVIR [Suspect]
     Indication: ANTIVIRAL PROPHYLAXIS
     Route: 064
  2. COMBIVIR [Suspect]
     Indication: ANTIVIRAL PROPHYLAXIS
     Route: 048
  3. COMBIVIR [Suspect]
     Indication: HIV INFECTION
     Route: 064

REACTIONS (6)
  - HEPATOSPLENOMEGALY [None]
  - NATURAL KILLER-CELL LEUKAEMIA [None]
  - PANCYTOPENIA [None]
  - TRANSAMINASES INCREASED [None]
  - INFLAMMATION [None]
  - DRUG EXPOSURE DURING PREGNANCY [None]
